FAERS Safety Report 21047764 (Version 7)
Quarter: 2023Q2

REPORT INFORMATION
  Report Type: Spontaneous
  Country: US (occurrence: US)
  Receive Date: 20220706
  Receipt Date: 20230613
  Transmission Date: 20230722
  Serious: Yes (Other)
  Sender: FDA-Public Use
  Company Number: US-PFIZER INC-2019276377

PATIENT
  Age: 71 Year
  Sex: Female
  Weight: 34.971 kg

DRUGS (6)
  1. PREMARIN [Suspect]
     Active Substance: ESTROGENS, CONJUGATED
     Dosage: ONCE WEEKLY
  2. PREMARIN [Suspect]
     Active Substance: ESTROGENS, CONJUGATED
     Dosage: UNK, 2X/WEEK
  3. PREMARIN [Suspect]
     Active Substance: ESTROGENS, CONJUGATED
     Dosage: INSERT HALF GM VAGINALLY DAILY FOR 2 WEEKS THEN TWICE A WEEK
     Route: 067
  4. LOSARTAN [Concomitant]
     Active Substance: LOSARTAN
     Indication: Blood pressure abnormal
     Dosage: 100 MG, 1X/DAY
  5. ATENOLOL [Concomitant]
     Active Substance: ATENOLOL
     Indication: Blood pressure abnormal
     Dosage: 50 MG, 2X/DAY
  6. AMLODIPINE [Concomitant]
     Active Substance: AMLODIPINE BESYLATE
     Indication: Blood pressure abnormal
     Dosage: 5 MG, 1X/DAY

REACTIONS (9)
  - Urinary tract infection [Unknown]
  - Hiatus hernia [Unknown]
  - Blood urine [Unknown]
  - Fall [Unknown]
  - Muscle strain [Unknown]
  - COVID-19 [Unknown]
  - Weight increased [Unknown]
  - Illness [Unknown]
  - Off label use [Unknown]
